FAERS Safety Report 20015695 (Version 1)
Quarter: 2021Q4

REPORT INFORMATION
  Report Type: Spontaneous
  Country: US (occurrence: None)
  Receive Date: 20211101
  Receipt Date: 20211101
  Transmission Date: 20220304
  Serious: Yes (Disabling)
  Sender: FDA-Public Use
  Company Number: None

PATIENT
  Age: 79 Year
  Sex: Male
  Weight: 162 kg

DRUGS (1)
  1. DOCUSATE [Suspect]
     Active Substance: DOCUSATE
     Indication: Constipation
     Dosage: OTHER QUANTITY : 1 CAPSULE(S);?
     Route: 048
     Dates: start: 20210907, end: 20210907

REACTIONS (4)
  - Throat irritation [None]
  - Oesophageal pain [None]
  - Dyspnoea [None]
  - Product use complaint [None]

NARRATIVE: CASE EVENT DATE: 20210907
